FAERS Safety Report 6751941-1 (Version None)
Quarter: 2010Q2

REPORT INFORMATION
  Report Type: 
  Country: None (occurrence: None)
  Receive Date: 20100602
  Receipt Date: 20100519
  Transmission Date: 20101027
  Serious: Yes (Hospitalization, Disabling)
  Sender: FDA-Public Use
  Company Number: ES-ELI_LILLY_AND_COMPANY-ES201005005236

PATIENT
  Sex: Male

DRUGS (2)
  1. FORTEO [Suspect]
     Indication: FEMUR FRACTURE
     Dosage: 20 UG, DAILY (1/D)
     Route: 058
     Dates: start: 20090501, end: 20100309
  2. CALCIO [Concomitant]
     Dosage: UNK, DAILY (1/D)
     Route: 048
     Dates: end: 20100309

REACTIONS (3)
  - FALL [None]
  - QUADRIPLEGIA [None]
  - SPINAL CORD INJURY CERVICAL [None]
